FAERS Safety Report 8505962-9 (Version None)
Quarter: 2012Q3

REPORT INFORMATION
  Report Type: 
  Country: None (occurrence: None)
  Receive Date: 20120712
  Receipt Date: 20120705
  Transmission Date: 20120928
  Serious: Yes (Other)
  Sender: FDA-Public Use
  Company Number: US-GLAXOSMITHKLINE-A0983402A

PATIENT
  Age: 37 Year
  Sex: Male

DRUGS (2)
  1. NEXIUM [Concomitant]
  2. WELLBUTRIN SR [Suspect]
     Indication: DEPRESSION
     Dosage: 150MG TWICE PER DAY
     Route: 048
     Dates: start: 20120201

REACTIONS (7)
  - LOSS OF CONSCIOUSNESS [None]
  - ELECTROENCEPHALOGRAM ABNORMAL [None]
  - HEMIPLEGIA [None]
  - THERAPEUTIC RESPONSE UNEXPECTED [None]
  - MIGRAINE [None]
  - CONVULSION [None]
  - PARKINSON'S DISEASE [None]
